FAERS Safety Report 6614146-0 (Version None)
Quarter: 2010Q1

REPORT INFORMATION
  Report Type: 
  Country: None (occurrence: None)
  Receive Date: 20100304
  Receipt Date: 20100223
  Transmission Date: 20100710
  Serious: Yes (Hospitalization)
  Sender: FDA-Public Use
  Company Number: GXKR2010IT02256

PATIENT
  Sex: Female

DRUGS (3)
  1. LORAZEPAM (NGX) [Suspect]
     Dosage: UNK
     Route: 065
  2. DIAZEPAM [Suspect]
     Dosage: UNK
     Route: 065
  3. DRUG THERAPY NOS [Suspect]
     Route: 065

REACTIONS (2)
  - COMA [None]
  - DRUG TOXICITY [None]
